FAERS Safety Report 14824845 (Version 3)
Quarter: 2018Q2

REPORT INFORMATION
  Report Type: Report from Study
  Country: None (occurrence: US)
  Receive Date: 20180430
  Receipt Date: 20180511
  Transmission Date: 20180711
  Serious: Yes (Hospitalization)
  Sender: FDA-Public Use
  Company Number: US-ABBVIE-18K-163-2336730-00

PATIENT
  Age: 46 Year
  Sex: Male
  Weight: 113.5 kg

DRUGS (1)
  1. HUMIRA [Suspect]
     Active Substance: ADALIMUMAB
     Indication: COLITIS ULCERATIVE
     Dosage: DAY 1
     Route: 058
     Dates: start: 20180413, end: 20180413

REACTIONS (14)
  - Loss of consciousness [Unknown]
  - Eczema [Recovering/Resolving]
  - Memory impairment [Recovered/Resolved]
  - Hypotension [Unknown]
  - Atrial fibrillation [Recovering/Resolving]
  - Loss of consciousness [Recovered/Resolved]
  - Anaemia [Not Recovered/Not Resolved]
  - Feeling hot [Recovering/Resolving]
  - Drug hypersensitivity [Recovering/Resolving]
  - Feeling hot [Recovered/Resolved]
  - Nausea [Unknown]
  - Tongue eruption [Recovering/Resolving]
  - Skin exfoliation [Recovering/Resolving]
  - Psoriasis [Unknown]

NARRATIVE: CASE EVENT DATE: 201804
